FAERS Safety Report 23888984 (Version 1)
Quarter: 2024Q2

REPORT INFORMATION
  Report Type: Spontaneous
  Country: US (occurrence: US)
  Receive Date: 20240523
  Receipt Date: 20240523
  Transmission Date: 20240715
  Serious: No
  Sender: FDA-Public Use
  Company Number: US-TEVA-VS-3198501

PATIENT
  Age: 71 Year

DRUGS (4)
  1. AUSTEDO [Suspect]
     Active Substance: DEUTETRABENAZINE
     Indication: Dyskinesia
     Dosage: ONE 6 MG PLUS ONE 12 MG TABLET TWICE DAILY
     Route: 065
  2. AMBIEN [Concomitant]
     Active Substance: ZOLPIDEM TARTRATE
  3. LEXAPRO [Concomitant]
     Active Substance: ESCITALOPRAM OXALATE
  4. BUSPAR [Concomitant]
     Active Substance: BUSPIRONE HYDROCHLORIDE

REACTIONS (4)
  - Feeling abnormal [Unknown]
  - Product dose omission issue [Unknown]
  - Off label use [Unknown]
  - Product use issue [Unknown]
